FAERS Safety Report 6242592-6 (Version None)
Quarter: 2009Q2

REPORT INFORMATION
  Report Type: 
  Country: None (occurrence: None)
  Receive Date: 20090624
  Receipt Date: 20090622
  Transmission Date: 20091009
  Serious: Yes (Death, Hospitalization, Other)
  Sender: FDA-Public Use
  Company Number: US-ASTRAZENECA-2009UW16408

PATIENT
  Age: 23935 Day
  Sex: Female
  Weight: 68 kg

DRUGS (11)
  1. SEROQUEL [Suspect]
     Route: 048
     Dates: end: 20080327
  2. NAVANE [Concomitant]
  3. IMIPRAMINE [Concomitant]
     Dosage: 50 MG TWO EACH NIGHT
  4. NIASPAN [Concomitant]
     Dosage: 500 MG TWO AT BEDTIME
  5. NADOLOL [Concomitant]
  6. BENZTROPINE [Concomitant]
  7. ASPIRIN [Concomitant]
     Dosage: ONE DAILY
  8. BI-ESTROGEN/PROGESTERONE [Concomitant]
  9. TESTOSTERONE [Concomitant]
  10. LORAZEPAM [Concomitant]
     Route: 048
  11. ALREX [Concomitant]

REACTIONS (40)
  - ACTIVATED PARTIAL THROMBOPLASTIN TIME SHORTENED [None]
  - ADVERSE DRUG REACTION [None]
  - ASPARTATE AMINOTRANSFERASE INCREASED [None]
  - BASE EXCESS DECREASED [None]
  - BLOOD ALBUMIN DECREASED [None]
  - BLOOD ALKALINE PHOSPHATASE DECREASED [None]
  - BLOOD BICARBONATE DECREASED [None]
  - BLOOD CALCIUM DECREASED [None]
  - BLOOD CREATINE PHOSPHOKINASE MB INCREASED [None]
  - BLOOD GLUCOSE INCREASED [None]
  - BLOOD PH DECREASED [None]
  - BLOOD POTASSIUM DECREASED [None]
  - BUNDLE BRANCH BLOCK BILATERAL [None]
  - CARBON DIOXIDE DECREASED [None]
  - CARDIAC ARREST [None]
  - CARDIO-RESPIRATORY ARREST [None]
  - CATATONIA [None]
  - DEMENTIA [None]
  - DRUG LEVEL DECREASED [None]
  - EOSINOPHIL COUNT DECREASED [None]
  - EXTRAPYRAMIDAL DISORDER [None]
  - FIBRIN D DIMER INCREASED [None]
  - HALLUCINATION [None]
  - HALLUCINATION, AUDITORY [None]
  - LYMPHOCYTE COUNT INCREASED [None]
  - MAJOR DEPRESSION [None]
  - MEAN CELL HAEMOGLOBIN CONCENTRATION DECREASED [None]
  - MEAN CELL HAEMOGLOBIN INCREASED [None]
  - MONOCYTE COUNT INCREASED [None]
  - NEUTROPHIL COUNT DECREASED [None]
  - PCO2 INCREASED [None]
  - PROTHROMBIN TIME PROLONGED [None]
  - PSYCHOTIC DISORDER [None]
  - PULMONARY EMBOLISM [None]
  - RED BLOOD CELL COUNT DECREASED [None]
  - SCHIZOPHRENIA [None]
  - SUICIDAL IDEATION [None]
  - UNRESPONSIVE TO STIMULI [None]
  - VISUAL ACUITY REDUCED [None]
  - WHITE BLOOD CELL COUNT DECREASED [None]
